FAERS Safety Report 4697333-0 (Version None)
Quarter: 2005Q2

REPORT INFORMATION
  Report Type: 
  Country: None (occurrence: None)
  Receive Date: 20050620
  Receipt Date: 20050609
  Transmission Date: 20051028
  Serious: Yes (Hospitalization)
  Sender: FDA-Public Use
  Company Number: 2003-105578-NL

PATIENT
  Sex: Female

DRUGS (5)
  1. MENOTROPINS [Suspect]
     Indication: INFERTILITY
     Dosage: DF INTRAMUSCULAR
     Route: 030
     Dates: start: 19970101
  2. CHORIONIC GONADOTROPIN [Suspect]
     Indication: INFERTILITY
     Dosage: DF
     Dates: start: 19970101
  3. BUSERELIN ACETATE [Suspect]
     Indication: INFERTILITY
     Dosage: DF
  4. CLOMIPHENE CITRATE [Suspect]
     Dosage: DF
     Dates: start: 19970101
  5. TERGURIDE [Concomitant]

REACTIONS (2)
  - BREAST CANCER FEMALE [None]
  - OESTROGEN RECEPTOR ASSAY POSITIVE [None]
